FAERS Safety Report 25337980 (Version 2)
Quarter: 2025Q2

REPORT INFORMATION
  Report Type: Report from Study
  Country: EG (occurrence: EG)
  Receive Date: 20250520
  Receipt Date: 20250627
  Transmission Date: 20250716
  Serious: No
  Sender: SANDOZ
  Company Number: EG-SANDOZ-SDZ2025EG034382

PATIENT
  Age: 8 Year
  Sex: Female

DRUGS (1)
  1. OMNITROPE [Suspect]
     Active Substance: SOMATROPIN
     Indication: Growth hormone deficiency
     Route: 058

REACTIONS (4)
  - Drug administered in wrong device [Unknown]
  - Device breakage [Unknown]
  - Therapy interrupted [Unknown]
  - Product substitution [Unknown]

NARRATIVE: CASE EVENT DATE: 20240330
